FAERS Safety Report 10530283 (Version 1)
Quarter: 2014Q4

REPORT INFORMATION
  Report Type: Spontaneous
  Country: GB (occurrence: None)
  Receive Date: 20141020
  Receipt Date: 20141020
  Transmission Date: 20150528
  Serious: No
  Sender: FDA-Public Use
  Company Number: None

PATIENT
  Age: 84 Year
  Sex: Female

DRUGS (1)
  1. VESICARE [Suspect]
     Active Substance: SOLIFENACIN SUCCINATE
     Indication: HYPERTONIC BLADDER
     Route: 048

REACTIONS (6)
  - Scratch [None]
  - Pruritus [None]
  - Urticaria [None]
  - Rash [None]
  - Inflammation [None]
  - Haemorrhage [None]

NARRATIVE: CASE EVENT DATE: 20141019
